FAERS Safety Report 5705232-8 (Version None)
Quarter: 2008Q2

REPORT INFORMATION
  Report Type: 
  Country: None (occurrence: None)
  Receive Date: 20080410
  Receipt Date: 20010702
  Transmission Date: 20081010
  Serious: Yes (Life-Threatening, Hospitalization, Other)
  Sender: FDA-Public Use
  Company Number: 2008008291

PATIENT
  Age: 22 Year
  Sex: Male

DRUGS (1)
  1. BENADRYL [Suspect]
     Dosage: 1 TABLET STAT SINGLE, ORAL
     Route: 048

REACTIONS (3)
  - ANGIOEDEMA [None]
  - DYSPNOEA [None]
  - URTICARIA [None]
